FAERS Safety Report 5286700-2 (Version None)
Quarter: 2007Q1

REPORT INFORMATION
  Report Type: 
  Country: None (occurrence: None)
  Receive Date: 20070116
  Receipt Date: 20061111
  Transmission Date: 20070707
  Serious: No
  Sender: FDA-Public Use
  Company Number: 2006SP004017

PATIENT
  Age: 60 Year
  Sex: Female
  Weight: 90.7194 kg

DRUGS (2)
  1. LUNESTA [Suspect]
     Indication: INSOMNIA
     Dosage: 3 MG; HS;ORAL
     Route: 048
     Dates: start: 20061001
  2. PREGNONOLONE [Concomitant]

REACTIONS (1)
  - INSOMNIA [None]
